FAERS Safety Report 8773387 (Version 1)
Quarter: 2012Q4

REPORT INFORMATION
  Report Type: 
  Country: US (occurrence: US)
  Receive Date: 20120907
  Receipt Date: 20120907
  Transmission Date: 20130627
  Serious: No
  Sender: FDA-Public Use
  Company Number: US-B.I. PHARMACEUTICALS,INC./RIDGEFIELD-2012-BP-21474BP

PATIENT
  Sex: Male

DRUGS (5)
  1. SPIRIVA [Suspect]
     Indication: CHRONIC OBSTRUCTIVE PULMONARY DISEASE
     Dosage: 18 mcg
     Route: 055
     Dates: start: 201205, end: 20120831
  2. COREG [Concomitant]
     Indication: CARDIAC DISORDER
     Dates: start: 2006
  3. BROVANA [Concomitant]
     Indication: CHRONIC OBSTRUCTIVE PULMONARY DISEASE
     Dates: start: 2009
  4. IPRATROPIUM BROMIDE [Concomitant]
     Indication: HYPERSENSITIVITY
     Dates: start: 2002
  5. ALTACE [Concomitant]
     Indication: CARDIAC DISORDER
     Dates: start: 2005

REACTIONS (2)
  - Oral fungal infection [Recovered/Resolved]
  - Oral fungal infection [Not Recovered/Not Resolved]
